FAERS Safety Report 4292850-X (Version None)
Quarter: 2004Q1

REPORT INFORMATION
  Report Type: 
  Country: None (occurrence: None)
  Receive Date: 20040210
  Receipt Date: 20031016
  Transmission Date: 20041129
  Serious: Yes (Death, Life-Threatening, Hospitalization)
  Sender: FDA-Public Use
  Company Number: PT-JNJFOC-20030805915

PATIENT
  Age: 43 Year
  Sex: Female
  Weight: 140 kg

DRUGS (5)
  1. TOPAMAX [Suspect]
     Indication: BIPOLAR DISORDER
     Dosage: 25 MG, 2 IN 1 DAY, ORAL
     Route: 048
     Dates: start: 20030703, end: 20030810
  2. RISPERIDONE [Concomitant]
  3. CARBONATE LITHIUM (LITHIUM CARBONATE) [Concomitant]
  4. CISORDINOL DEPOT (ZUCLOPENTHIXOL DECANOATE) [Concomitant]
  5. AKINETON [Concomitant]

REACTIONS (15)
  - BLOOD CREATINE PHOSPHOKINASE INCREASED [None]
  - BRAIN OEDEMA [None]
  - COMA [None]
  - CONFUSIONAL STATE [None]
  - DEPRESSED MOOD [None]
  - HYPERTHERMIA [None]
  - HYPERTHERMIA MALIGNANT [None]
  - INCOHERENT [None]
  - LOSS OF CONSCIOUSNESS [None]
  - MUTISM [None]
  - MYOCARDIAL INFARCTION [None]
  - NOSOCOMIAL INFECTION [None]
  - RENAL IMPAIRMENT [None]
  - RESPIRATORY FAILURE [None]
  - RHABDOMYOLYSIS [None]
